FAERS Safety Report 21674735 (Version 1)
Quarter: 2022Q4

REPORT INFORMATION
  Report Type: Spontaneous
  Country: US (occurrence: None)
  Receive Date: 20221201
  Receipt Date: 20221201
  Transmission Date: 20230113
  Serious: Yes (unspecified)
  Sender: FDA-Public Use
  Company Number: None

PATIENT
  Age: 80 Year
  Sex: Female
  Weight: 58.18 kg

DRUGS (2)
  1. ORITAVANCIN [Suspect]
     Active Substance: ORITAVANCIN
     Indication: Skin bacterial infection
     Dosage: FREQUENCY : ONCE;?
     Route: 041
     Dates: start: 20220923, end: 20221011
  2. ORITAVANCIN [Suspect]
     Active Substance: ORITAVANCIN
     Indication: Soft tissue infection

REACTIONS (3)
  - Dyspnoea [None]
  - Poor peripheral circulation [None]
  - Heart rate increased [None]

NARRATIVE: CASE EVENT DATE: 20221011
